FAERS Safety Report 21793918 (Version 1)
Quarter: 2022Q4

REPORT INFORMATION
  Report Type: Report from Study
  Country: US (occurrence: US)
  Receive Date: 20221229
  Receipt Date: 20221229
  Transmission Date: 20230113
  Serious: No
  Sender: FDA-Public Use
  Company Number: US-ABBVIE-4252371

PATIENT
  Age: 73 Year
  Sex: Male
  Weight: 83.007 kg

DRUGS (27)
  1. VENCLEXTA [Suspect]
     Active Substance: VENETOCLAX
     Indication: Lung neoplasm malignant
     Route: 048
     Dates: start: 202108
  2. VENCLEXTA [Suspect]
     Active Substance: VENETOCLAX
     Indication: Lung neoplasm malignant
     Dosage: FORM STRENGTH: 100 MILLIGRAM
     Route: 048
     Dates: start: 20221109
  3. PROCHLORPERAZINE MALEATE [Concomitant]
     Active Substance: PROCHLORPERAZINE MALEATE
     Indication: Product used for unknown indication
     Dosage: TIME INTERVAL: 0.33333333 DAYS
     Route: 048
  4. FLOMAX [Concomitant]
     Active Substance: TAMSULOSIN HYDROCHLORIDE
     Indication: Product used for unknown indication
     Route: 048
  5. ALLOPURINOL [Concomitant]
     Active Substance: ALLOPURINOL
     Indication: Product used for unknown indication
     Route: 048
  6. GARLIC [Concomitant]
     Active Substance: GARLIC
     Indication: Product used for unknown indication
     Route: 048
  7. GABAPENTIN [Concomitant]
     Active Substance: GABAPENTIN
     Indication: Neuropathy peripheral
     Dosage: TIME INTERVAL: 0.33333333 DAYS
     Route: 048
  8. VITAMIN E [Concomitant]
     Active Substance: .ALPHA.-TOCOPHEROL
     Indication: Product used for unknown indication
  9. DIETARY SUPPLEMENT\HERBALS\MILK THISTLE [Concomitant]
     Active Substance: DIETARY SUPPLEMENT\HERBALS\MILK THISTLE
     Indication: Product used for unknown indication
     Route: 048
  10. ALEVE [Concomitant]
     Active Substance: NAPROXEN SODIUM
     Indication: Product used for unknown indication
     Route: 048
  11. TYLENOL EXTRA STRENGTH [Concomitant]
     Active Substance: ACETAMINOPHEN
     Indication: Neuralgia
     Route: 048
  12. TYLENOL EXTRA STRENGTH [Concomitant]
     Active Substance: ACETAMINOPHEN
     Indication: Neuralgia
     Dosage: TIME INTERVAL: 0.33333333 DAYS
  13. SYNTHROID [Concomitant]
     Active Substance: LEVOTHYROXINE SODIUM
     Indication: Product used for unknown indication
     Route: 048
  14. ACYCLOVIR [Concomitant]
     Active Substance: ACYCLOVIR
     Indication: Product used for unknown indication
     Route: 048
  15. COENZYME Q10 [Concomitant]
     Active Substance: DIETARY SUPPLEMENT\UBIDECARENONE
     Indication: Product used for unknown indication
     Route: 048
  16. VITAMIN C [Concomitant]
     Active Substance: ASCORBIC ACID
     Indication: Product used for unknown indication
     Dosage: 3 TABS PO QD
  17. EYLEA [Concomitant]
     Active Substance: AFLIBERCEPT
     Indication: Product used for unknown indication
     Dosage: 2MG/0.05ML
  18. SERTRALINE [Concomitant]
     Active Substance: SERTRALINE HYDROCHLORIDE
     Indication: Product used for unknown indication
     Dosage: 1 PO EVERY OTHER DAY
     Route: 048
  19. UDENYCA [Concomitant]
     Active Substance: PEGFILGRASTIM-CBQV
     Indication: Product used for unknown indication
     Dosage: 6MG/0.6 ML SYRINGE
     Route: 058
  20. UDENYCA [Concomitant]
     Active Substance: PEGFILGRASTIM-CBQV
     Indication: Product used for unknown indication
     Dosage: 6MG/0.6 ML SYRINGE
     Route: 058
  21. LIDOCAINE\PRILOCAINE [Concomitant]
     Active Substance: LIDOCAINE\PRILOCAINE
     Indication: Product used for unknown indication
     Dosage: 2.5 %/APPLY TO PORT 45 MINUTES TO 1 HOUR
     Route: 061
  22. ONDANSETRON [Concomitant]
     Active Substance: ONDANSETRON
     Indication: Nausea
     Route: 048
  23. CLARITIN LIQUI-GELS [Concomitant]
     Active Substance: LORATADINE
     Indication: Product used for unknown indication
     Route: 048
  24. ACETAMINOPHEN [Concomitant]
     Active Substance: ACETAMINOPHEN
     Indication: Product used for unknown indication
     Route: 048
  25. COMPAZINE [Concomitant]
     Active Substance: PROCHLORPERAZINE MALEATE
     Indication: Nausea
     Route: 048
  26. TRAMADOL [Concomitant]
     Active Substance: TRAMADOL
     Indication: Neuralgia
     Dosage: TIME INTERVAL: 0.33333333 DAYS
     Route: 048
  27. CIALIS [Concomitant]
     Active Substance: TADALAFIL
     Indication: Product used for unknown indication
     Dosage: TAKE 0.5 TABLETS PO QD
     Route: 048

REACTIONS (2)
  - Feeling abnormal [Not Recovered/Not Resolved]
  - Mental impairment [Not Recovered/Not Resolved]

NARRATIVE: CASE EVENT DATE: 20220901
